FAERS Safety Report 25930343 (Version 1)
Quarter: 2025Q4

REPORT INFORMATION
  Report Type: Spontaneous
  Country: US (occurrence: US)
  Receive Date: 20251016
  Receipt Date: 20251016
  Transmission Date: 20260117
  Serious: No
  Sender: PFIZER
  Company Number: US-PFIZER INC-PV202300139151

PATIENT
  Age: 72 Year
  Sex: Male

DRUGS (2)
  1. BOSULIF [Interacting]
     Active Substance: BOSUTINIB MONOHYDRATE
     Dosage: 400 MG, DAILY (TAKE 1 TABLET BY MOUTH DAILY)
     Route: 048
  2. CALCIUM [Interacting]
     Active Substance: CALCIUM
     Dosage: UNK

REACTIONS (1)
  - Drug interaction [Unknown]
